FAERS Safety Report 8811192 (Version 1)
Quarter: 2012Q4

REPORT INFORMATION
  Report Type: Spontaneous
  Country: US (occurrence: None)
  Receive Date: 20120924
  Receipt Date: 20120924
  Transmission Date: 20130627
  Serious: Yes (Hospitalization)
  Sender: FDA-Public Use
  Company Number: None

PATIENT
  Age: 49 Year
  Sex: Female
  Weight: 79.83 kg

DRUGS (10)
  1. TIZANIDINE HYDROCHLORIDE [Suspect]
     Indication: MUSCLE SPASMS
     Route: 048
     Dates: start: 20120828, end: 20120909
  2. LYRICA [Suspect]
     Indication: NEUROPATHIC PAIN
     Route: 048
     Dates: start: 20120828, end: 20120909
  3. PLAQUENIL [Concomitant]
  4. AMBIEN [Concomitant]
  5. VICODIN [Concomitant]
  6. SPIRONOLACTONE [Concomitant]
  7. CELEBREX [Concomitant]
  8. CARVEDILOL [Concomitant]
  9. PREMARIN [Concomitant]
  10. FENTANYL [Concomitant]

REACTIONS (2)
  - Cardiac failure congestive [None]
  - Anaemia [None]
